FAERS Safety Report 4862817-9 (Version None)
Quarter: 2005Q4

REPORT INFORMATION
  Report Type: 
  Country: None (occurrence: None)
  Receive Date: 20051221
  Receipt Date: 20051118
  Transmission Date: 20060501
  Serious: Yes (Other)
  Sender: FDA-Public Use
  Company Number: PHEH2005US12747

PATIENT
  Age: 70 Year
  Sex: Female

DRUGS (16)
  1. PAMIDRONATE DISODIUM [Suspect]
     Indication: BREAST CANCER METASTATIC
     Dosage: 90 MG, EVERY 28 DAYS
     Dates: start: 20000701, end: 20051101
  2. TRIAMTERENE [Concomitant]
  3. ATENOLOL [Concomitant]
  4. LACTULOSE [Concomitant]
  5. ATORVASTATIN CALCIUM [Concomitant]
  6. CALCIUM GLUCONATE [Concomitant]
  7. OXYCONTIN [Concomitant]
     Dosage: 80 MG, BID
  8. PERCOCET [Concomitant]
  9. M.V.I. [Concomitant]
  10. ARANESP [Concomitant]
     Indication: ANAEMIA OF MALIGNANT DISEASE
     Dosage: 300 MCG
     Dates: start: 20040201, end: 20041001
  11. FASLODEX [Concomitant]
     Indication: BREAST CANCER
     Dosage: 250 MG, QMO
     Route: 030
     Dates: start: 20040501, end: 20041001
  12. TAXOL [Concomitant]
     Indication: BREAST CANCER
     Dosage: 140 MG, QW
     Dates: start: 20041001, end: 20051101
  13. CARBOPLATIN [Concomitant]
     Indication: BREAST CANCER
     Dosage: 110 MG, QW
     Dates: start: 20041001, end: 20051101
  14. DEXAMETHASONE [Concomitant]
     Indication: BREAST CANCER
     Dosage: 10 MG, QW
     Dates: start: 20041001, end: 20051101
  15. DIPHENHYDRAMINE HCL [Concomitant]
     Indication: BREAST CANCER
     Dosage: 25 MG, QW
     Route: 042
     Dates: start: 20041001, end: 20051101
  16. ZOFRAN [Concomitant]
     Indication: BREAST CANCER
     Dosage: 16 MG, QW
     Route: 042
     Dates: start: 20041001, end: 20051101

REACTIONS (5)
  - BONE DISORDER [None]
  - EXOSTOSIS [None]
  - JAW DISORDER [None]
  - OSTEONECROSIS [None]
  - TOOTH EXTRACTION [None]
